FAERS Safety Report 6476785-X (Version None)
Quarter: 2009Q4

REPORT INFORMATION
  Report Type: 
  Country: None (occurrence: None)
  Receive Date: 20091207
  Receipt Date: 20091203
  Transmission Date: 20100525
  Serious: Yes (Death, Hospitalization)
  Sender: FDA-Public Use
  Company Number: PHEH2009US16728

PATIENT
  Sex: Female
  Weight: 89 kg

DRUGS (6)
  1. EXJADE [Suspect]
     Indication: LUNG NEOPLASM MALIGNANT
     Dosage: 1000 MG, QD
     Route: 048
     Dates: start: 20071211
  2. EXJADE [Suspect]
     Indication: IRON OVERLOAD
     Dosage: 500 MG, TID
     Route: 048
     Dates: end: 20091105
  3. VICODIN [Concomitant]
     Indication: PAIN
     Dosage: 7.5/7500, Q4-6 HRS
     Route: 048
  4. GUAIFENESIN [Concomitant]
     Indication: COUGH
     Dosage: 400 MG, Q4H PRN
     Route: 048
     Dates: start: 20090629
  5. ATIVAN [Concomitant]
     Indication: ANXIETY
     Dosage: 0.5 MG, Q12H
     Route: 048
     Dates: start: 20091029
  6. PREDNISONE [Concomitant]
     Indication: DYSPNOEA
     Dosage: 40 MG, QD
     Route: 048
     Dates: start: 20090629

REACTIONS (1)
  - MALIGNANT NEOPLASM PROGRESSION [None]
